FAERS Safety Report 7487214-1 (Version None)
Quarter: 2011Q2

REPORT INFORMATION
  Report Type: 
  Country: None (occurrence: None)
  Receive Date: 20110518
  Receipt Date: 20110404
  Transmission Date: 20111010
  Serious: Yes (Other)
  Sender: FDA-Public Use
  Company Number: US-BAYER-201037468NA

PATIENT
  Age: 27 Year
  Sex: Female
  Weight: 73 kg

DRUGS (17)
  1. AMITIZA [Concomitant]
     Dosage: 24 UNK, UNK
  2. SINGULAIR [Concomitant]
     Dosage: 10 MG, UNK
     Route: 048
     Dates: start: 20070605
  3. MULTI-VITAMIN [Concomitant]
     Route: 048
  4. XANAX [Concomitant]
     Dosage: 0.5 MG, PRN
     Route: 048
  5. PROTONIX [Concomitant]
     Dosage: 40 MG, QD
     Route: 048
     Dates: start: 20070517
  6. ALPRAZOLAM [Concomitant]
     Dosage: 0.5 MG, TID
     Route: 048
     Dates: start: 20070727
  7. VIATIM [Concomitant]
     Dosage: 1000 ?G, QD
     Route: 048
  8. LIBRAX [Concomitant]
     Dosage: UNK UNK, QD
     Route: 048
  9. YAZ [Suspect]
     Indication: PREMENSTRUAL SYNDROME
     Dosage: UNK
     Route: 048
     Dates: start: 20050101, end: 20080201
  10. FLUTICASONE PROPIONATE [Concomitant]
     Dosage: UNK
     Route: 045
     Dates: start: 20070518
  11. YASMIN [Suspect]
     Indication: PREMENSTRUAL SYNDROME
     Dosage: UNK
     Route: 048
     Dates: start: 20050101, end: 20080201
  12. PHENTERMINE [Concomitant]
     Dosage: 37.5 MG, UNK
     Route: 048
     Dates: start: 20070626
  13. IRON COMPLEX [Concomitant]
     Dosage: UNK UNK, QD
     Route: 048
  14. TUMS [CALCIUM CARBONATE] [Concomitant]
     Dosage: UNK UNK, BID
     Route: 048
  15. MIRALAX [Concomitant]
     Dosage: UNK UNK, PRN
     Route: 048
     Dates: start: 20080128
  16. SULFAMETHOXAZOLE [Concomitant]
     Dosage: UNK UNK, BID
     Route: 048
     Dates: start: 20070727
  17. VITAMIN E [Concomitant]
     Route: 048

REACTIONS (5)
  - ABDOMINAL PAIN UPPER [None]
  - GALLBLADDER DISORDER [None]
  - PAIN [None]
  - CHOLELITHIASIS [None]
  - CHOLECYSTITIS CHRONIC [None]
